FAERS Safety Report 9669861 (Version 1)
Quarter: 2013Q4

REPORT INFORMATION
  Report Type: Report from Study
  Country: KP (occurrence: KR)
  Receive Date: 20131105
  Receipt Date: 20131105
  Transmission Date: 20140711
  Serious: No
  Sender: FDA-Public Use
  Company Number: PHHY2013KR123351

PATIENT
  Age: 51 Year
  Sex: Female

DRUGS (4)
  1. AMN107 [Suspect]
     Indication: CHRONIC MYELOID LEUKAEMIA
     Dosage: 600 MG, PER DAY
     Route: 048
     Dates: start: 20120615
  2. ALMAGATE [Concomitant]
     Indication: PROPHYLAXIS
     Dosage: 60 ML, UNK
     Route: 048
     Dates: start: 20120821
  3. PETHIDINE HCL [Concomitant]
     Indication: PREMEDICATION
     Dosage: 25 MG, UNK
     Route: 042
     Dates: start: 20120619, end: 20120619
  4. LIDOCAINE [Concomitant]
     Indication: PREMEDICATION
     Dosage: 400 MG, UNK
     Route: 058
     Dates: start: 20120619, end: 20120619

REACTIONS (1)
  - Headache [Not Recovered/Not Resolved]
